FAERS Safety Report 4322213-X (Version None)
Quarter: 2004Q1

REPORT INFORMATION
  Report Type: 
  Country: None (occurrence: None)
  Receive Date: 20040319
  Receipt Date: 20040315
  Transmission Date: 20041129
  Serious: Yes (Death)
  Sender: FDA-Public Use
  Company Number: 2004UW04893

PATIENT
  Sex: 0

DRUGS (1)
  1. SEROQUEL [Suspect]

REACTIONS (2)
  - COMPLETED SUICIDE [None]
  - MANIA [None]
